FAERS Safety Report 17172812 (Version 1)
Quarter: 2019Q4

REPORT INFORMATION
  Report Type: Spontaneous
  Country: US (occurrence: US)
  Receive Date: 20191218
  Receipt Date: 20191218
  Transmission Date: 20200122
  Serious: Yes (Other)
  Sender: FDA-Public Use
  Company Number: US-ANIPHARMA-2019-US-023902

PATIENT
  Age: 77 Year
  Sex: Male

DRUGS (7)
  1. UNSPECIFIED MULTIVITAMINS [Concomitant]
  2. ASPIRIN. [Concomitant]
     Active Substance: ASPIRIN
  3. LISINOPRIL. [Concomitant]
     Active Substance: LISINOPRIL
  4. ATORVASTATIN [Concomitant]
     Active Substance: ATORVASTATIN
  5. CARVEDILOL. [Concomitant]
     Active Substance: CARVEDILOL
  6. CLOPIDOGREL BISULFATE (NON-SPECIFIC) [Suspect]
     Active Substance: CLOPIDOGREL BISULFATE
     Indication: THROMBOSIS PROPHYLAXIS
  7. ISOSORBIDE MONONITRATE. [Concomitant]
     Active Substance: ISOSORBIDE MONONITRATE

REACTIONS (1)
  - Polyarthritis [Unknown]
